FAERS Safety Report 6109386-3 (Version None)
Quarter: 2009Q1

REPORT INFORMATION
  Report Type: 
  Country: None (occurrence: None)
  Receive Date: 20090310
  Receipt Date: 20090305
  Transmission Date: 20090719
  Serious: Yes (Other)
  Sender: FDA-Public Use
  Company Number: A0771546A

PATIENT
  Age: 68 Year
  Sex: Female

DRUGS (6)
  1. TYKERB [Suspect]
     Indication: PROPHYLACTIC CHEMOTHERAPY
     Dosage: 1250MG PER DAY
     Route: 048
     Dates: start: 20090220, end: 20090303
  2. AUGMENTIN '125' [Suspect]
     Indication: DRUG USE FOR UNKNOWN INDICATION
     Route: 048
     Dates: start: 19990101, end: 19990101
  3. CLARITIN [Concomitant]
  4. SINGULAIR [Concomitant]
  5. FLONASE [Concomitant]
  6. ARIMIDEX [Concomitant]

REACTIONS (3)
  - ASTHMA [None]
  - RASH [None]
  - VOMITING [None]
